FAERS Safety Report 7523521-1 (Version None)
Quarter: 2011Q2

REPORT INFORMATION
  Report Type: 
  Country: None (occurrence: None)
  Receive Date: 20110603
  Receipt Date: 20110601
  Transmission Date: 20111010
  Serious: Yes (Life-Threatening, Hospitalization)
  Sender: FDA-Public Use
  Company Number: JP-B.I. PHARMACEUTICALS,INC./RIDGEFIELD-2011-BP-11494NB

PATIENT
  Sex: Female
  Weight: 60.5 kg

DRUGS (7)
  1. EPLERENONE [Concomitant]
     Dosage: 50 MG
     Route: 048
     Dates: end: 20110420
  2. ASPIRIN [Concomitant]
     Dosage: 100 MG
     Route: 048
     Dates: end: 20110420
  3. LASIX [Concomitant]
     Dosage: 40 MG
     Route: 048
     Dates: end: 20110420
  4. PRADAXA [Suspect]
     Indication: ATRIAL FIBRILLATION
     Dosage: 220 MG
     Route: 048
     Dates: start: 20110417, end: 20110420
  5. AMIODARONE HYDROCHLORIDE [Concomitant]
     Dosage: 100 MG
     Route: 048
     Dates: end: 20110420
  6. CANDESARTAN CILEXETIL [Concomitant]
     Dosage: 8 MG
     Route: 048
     Dates: end: 20110420
  7. CLARITIN [Concomitant]
     Dosage: 10 MG
     Route: 048
     Dates: end: 20110420

REACTIONS (2)
  - BLEEDING TIME PROLONGED [None]
  - GASTROINTESTINAL HAEMORRHAGE [None]
